FAERS Safety Report 5939711-5 (Version None)
Quarter: 2008Q4

REPORT INFORMATION
  Report Type: 
  Country: None (occurrence: None)
  Receive Date: 20081030
  Receipt Date: 20081030
  Transmission Date: 20090506
  Serious: Yes (Hospitalization, Disabling)
  Sender: FDA-Public Use
  Company Number: None

PATIENT
  Age: 23 Year
  Sex: Male
  Weight: 74.8435 kg

DRUGS (1)
  1. ACCUTANE [Suspect]
     Dosage: ACNE

REACTIONS (4)
  - DIARRHOEA [None]
  - MUCOSAL DRYNESS [None]
  - NASAL DRYNESS [None]
  - PSYCHOTIC DISORDER [None]
